FAERS Safety Report 14746005 (Version 2)
Quarter: 2018Q2

REPORT INFORMATION
  Report Type: Spontaneous
  Country: BR (occurrence: BR)
  Receive Date: 20180411
  Receipt Date: 20180416
  Transmission Date: 20180711
  Serious: Yes (Other)
  Sender: FDA-Public Use
  Company Number: BR-COVIS PHARMA B.V.-2018COV03617

PATIENT
  Age: 67 Year
  Sex: Male
  Weight: 106.12 kg

DRUGS (8)
  1. OMEPRAZOLE MAGNESIUM. [Suspect]
     Active Substance: OMEPRAZOLE MAGNESIUM
     Route: 048
  2. DAFLON (DIOSMIN/HESPERIDIN) [Concomitant]
     Active Substance: DIOSMIN\HESPERIDIN
  3. XIGDUO XR [Suspect]
     Active Substance: DAPAGLIFLOZIN PROPANEDIOL\METFORMIN HYDROCHLORIDE
     Indication: TYPE 2 DIABETES MELLITUS
     Dosage: UNK
     Route: 048
     Dates: start: 201712
  4. TESTOSTERONE UNDECANOATE [Concomitant]
     Active Substance: TESTOSTERONE UNDECANOATE
     Dosage: UNK
     Dates: start: 201712
  5. XENICAL [Concomitant]
     Active Substance: ORLISTAT
  6. LIRAGLUTIDE [Concomitant]
     Active Substance: LIRAGLUTIDE
  7. VICTOZA [Concomitant]
     Active Substance: LIRAGLUTIDE
  8. GLIFAGE [Concomitant]
     Active Substance: METFORMIN HYDROCHLORIDE

REACTIONS (4)
  - Renal impairment [Not Recovered/Not Resolved]
  - Tubulointerstitial nephritis [Unknown]
  - Proteinuria [Unknown]
  - Hypersensitivity vasculitis [Not Recovered/Not Resolved]

NARRATIVE: CASE EVENT DATE: 201712
